FAERS Safety Report 4319129-1 (Version None)
Quarter: 2004Q1

REPORT INFORMATION
  Report Type: 
  Country: None (occurrence: None)
  Receive Date: 20040318
  Receipt Date: 20040308
  Transmission Date: 20041129
  Serious: Yes (Death)
  Sender: FDA-Public Use
  Company Number: WAES 0403GBR00080

PATIENT
  Age: 68 Year
  Sex: Male

DRUGS (2)
  1. ATORVASTATIN CALCIUM [Suspect]
  2. ZOCOR [Suspect]
     Route: 048

REACTIONS (4)
  - ALVEOLITIS FIBROSING [None]
  - CONDITION AGGRAVATED [None]
  - PULMONARY FIBROSIS [None]
  - RESPIRATORY FAILURE [None]
